FAERS Safety Report 10724202 (Version 1)
Quarter: 2015Q1

REPORT INFORMATION
  Report Type: Spontaneous
  Country: US (occurrence: None)
  Receive Date: 20150116
  Receipt Date: 20150116
  Transmission Date: 20150721
  Serious: No
  Sender: FDA-Public Use
  Company Number: None

PATIENT
  Age: 30 Year
  Sex: Male
  Weight: 102.06 kg

DRUGS (1)
  1. METHYLPHENIDATE HYDROCHLORIDE EX 36 MG KEMBERS URBAN [Suspect]
     Active Substance: METHYLPHENIDATE HYDROCHLORIDE
     Indication: ATTENTION DEFICIT/HYPERACTIVITY DISORDER
     Dosage: 1  ONCE DAILY TAKEN BY MOUTH
     Route: 048

REACTIONS (10)
  - Impulsive behaviour [None]
  - Anxiety [None]
  - Product quality issue [None]
  - Disturbance in attention [None]
  - Decreased interest [None]
  - Depression [None]
  - Product substitution issue [None]
  - Restlessness [None]
  - Memory impairment [None]
  - Drug effect decreased [None]

NARRATIVE: CASE EVENT DATE: 20150115
